FAERS Safety Report 16390007 (Version 1)
Quarter: 2019Q2

REPORT INFORMATION
  Report Type: Spontaneous
  Country: CH (occurrence: CH)
  Receive Date: 20190604
  Receipt Date: 20190604
  Transmission Date: 20190711
  Serious: Yes (Other)
  Sender: FDA-Public Use
  Company Number: CH-ASTRAZENECA-2019SE78855

PATIENT
  Age: 32 Year
  Sex: Male

DRUGS (11)
  1. PRIADEL [Suspect]
     Active Substance: LITHIUM
     Dosage: 800.0MG UNKNOWN
     Route: 065
     Dates: start: 2012, end: 201505
  2. NOZINAN [Suspect]
     Active Substance: LEVOMEPROMAZINE
     Dosage: 25.0MG UNKNOWN
     Route: 065
     Dates: start: 2012, end: 2012
  3. DEPAKINE CHRONO [Concomitant]
     Active Substance: VALPROATE SODIUM
     Dates: start: 201506, end: 2016
  4. ZYPREXA [Suspect]
     Active Substance: OLANZAPINE
     Dosage: 10.0MG UNKNOWN
     Route: 065
     Dates: start: 201801, end: 201802
  5. BRINTELLIX [Suspect]
     Active Substance: VORTIOXETINE HYDROBROMIDE
     Dosage: 10.0MG UNKNOWN
     Route: 065
     Dates: start: 2018
  6. HALOPERIDOL. [Suspect]
     Active Substance: HALOPERIDOL
     Dosage: 3.0MG UNKNOWN
     Route: 065
     Dates: start: 201903, end: 201903
  7. SEROQUEL [Suspect]
     Active Substance: QUETIAPINE FUMARATE
     Route: 048
     Dates: start: 2012, end: 201712
  8. ZYPREXA [Suspect]
     Active Substance: OLANZAPINE
     Dosage: 20.0MG UNKNOWN
     Route: 065
     Dates: start: 201802
  9. ALPRAZOLAM. [Concomitant]
     Active Substance: ALPRAZOLAM
     Dates: start: 2014, end: 2018
  10. TOPAMAX [Concomitant]
     Active Substance: TOPIRAMATE
     Dosage: 75.0MG UNKNOWN
     Dates: start: 2012, end: 2012
  11. EFEXOR [Suspect]
     Active Substance: VENLAFAXINE HYDROCHLORIDE
     Dosage: 150.0MG UNKNOWN
     Route: 065
     Dates: start: 201801, end: 2018

REACTIONS (2)
  - Electrocardiogram QT prolonged [Not Recovered/Not Resolved]
  - Condition aggravated [Recovered/Resolved]

NARRATIVE: CASE EVENT DATE: 2013
